FAERS Safety Report 9276019 (Version 1)
Quarter: 2013Q2

REPORT INFORMATION
  Report Type: Spontaneous
  Country: US (occurrence: US)
  Receive Date: 20130507
  Receipt Date: 20130507
  Transmission Date: 20140414
  Serious: No
  Sender: FDA-Public Use
  Company Number: US-PFIZER INC-2013139161

PATIENT
  Age: 53 Year
  Sex: Male
  Weight: 81.63 kg

DRUGS (2)
  1. ADVIL [Suspect]
     Indication: HEADACHE
     Dosage: UNK, AS NEEDED
     Route: 048
     Dates: start: 201304
  2. ADVIL [Suspect]
     Indication: PAIN IN EXTREMITY

REACTIONS (4)
  - Drug ineffective [Unknown]
  - Joint lock [Unknown]
  - Arthritis [Unknown]
  - Feeling abnormal [Unknown]
